FAERS Safety Report 16513169 (Version 1)
Quarter: 2019Q3

REPORT INFORMATION
  Report Type: Other
  Country: US (occurrence: US)
  Receive Date: 20190702
  Receipt Date: 20190702
  Transmission Date: 20191004
  Serious: Yes (Other)
  Sender: FDA-Public Use
  Company Number: US-NAVINTA LLC-000072

PATIENT
  Age: 21 Year
  Sex: Female
  Weight: 150 kg

DRUGS (74)
  1. CLONIDINE. [Suspect]
     Active Substance: CLONIDINE
     Indication: CHEST PAIN
     Dates: start: 20170309
  2. OXYCODONE [Concomitant]
     Active Substance: OXYCODONE
     Indication: PRODUCT USED FOR UNKNOWN INDICATION
     Dosage: 30 MG BID (UNKNOWN AMOUNT)
     Dates: start: 20170309
  3. PARACETAMOL [Concomitant]
     Active Substance: ACETAMINOPHEN
     Indication: PRODUCT USED FOR UNKNOWN INDICATION
     Dosage: 1000 MG Q4H (EVERY 4 HOURS)
     Dates: start: 20170602
  4. EPINEPHRINE. [Suspect]
     Active Substance: EPINEPHRINE
     Indication: CHEST PAIN
     Dates: start: 20171122
  5. CELECOXIB. [Concomitant]
     Active Substance: CELECOXIB
     Indication: PRODUCT USED FOR UNKNOWN INDICATION
     Dosage: 200 MG DAILY
     Dates: start: 20190312
  6. LIDOCAINE. [Suspect]
     Active Substance: LIDOCAINE
     Indication: CHEST PAIN
     Dosage: 1.5 PERCENT, 60MG
     Dates: start: 20171122
  7. CLONIDINE. [Suspect]
     Active Substance: CLONIDINE
     Indication: CHEST PAIN
     Dates: start: 20170602
  8. ROPIVACAINE/ROPIVACAINE HYDROCHLORIDE [Suspect]
     Active Substance: ROPIVACAINE HYDROCHLORIDE
     Indication: CHEST PAIN
     Dosage: 1 PERCENT, 180 MG
     Dates: start: 20171122
  9. CELECOXIB. [Concomitant]
     Active Substance: CELECOXIB
     Indication: PRODUCT USED FOR UNKNOWN INDICATION
     Dosage: 200 MG DAILY
     Dates: start: 20170602
  10. GABAPENTIN. [Concomitant]
     Active Substance: GABAPENTIN
     Indication: PRODUCT USED FOR UNKNOWN INDICATION
     Dosage: 300 MG DAILY
     Dates: start: 20180604
  11. CLONIDINE. [Concomitant]
     Active Substance: CLONIDINE
     Indication: PRODUCT USED FOR UNKNOWN INDICATION
     Dosage: 0.3 MG BID (TWICE DAILY)
     Dates: start: 20181120
  12. METHYLPREDNISOLONE. [Suspect]
     Active Substance: METHYLPREDNISOLONE
     Indication: CHEST PAIN
     Dates: start: 20170602
  13. AMITRIPTYLINE [Concomitant]
     Active Substance: AMITRIPTYLINE
     Indication: PRODUCT USED FOR UNKNOWN INDICATION
     Dosage: 20 MG DAILY
     Dates: start: 20171122
  14. TRAMADOL. [Concomitant]
     Active Substance: TRAMADOL
     Indication: PRODUCT USED FOR UNKNOWN INDICATION
     Dosage: 50 MG DAILY,10/17-10/24
     Dates: start: 20180814
  15. ROPIVACAINE/ROPIVACAINE HYDROCHLORIDE [Suspect]
     Active Substance: ROPIVACAINE HYDROCHLORIDE
     Indication: CHEST PAIN
     Dosage: 1 PERCENT, 200 MG
     Dates: start: 20180509
  16. EXPAREL [Suspect]
     Active Substance: BUPIVACAINE
     Indication: CHEST PAIN
     Dosage: 266 MG, 20 ML
     Dates: start: 20190312
  17. CELECOXIB. [Concomitant]
     Active Substance: CELECOXIB
     Indication: PRODUCT USED FOR UNKNOWN INDICATION
     Dosage: 200 MG DAILY
     Dates: start: 20180306
  18. OXYCODONE [Concomitant]
     Active Substance: OXYCODONE
     Indication: PRODUCT USED FOR UNKNOWN INDICATION
     Dosage: 15 MG TID (3 TIMES DAILY) (20 PILLS)
     Dates: start: 20180604
  19. CLONIDINE. [Concomitant]
     Active Substance: CLONIDINE
     Indication: PRODUCT USED FOR UNKNOWN INDICATION
     Dosage: 0.3 MG BID (TWICE DAILY)
     Dates: start: 20180604
  20. PARACETAMOL [Concomitant]
     Active Substance: ACETAMINOPHEN
     Indication: PRODUCT USED FOR UNKNOWN INDICATION
     Dosage: 1000 MG Q6H (EVERY 6 HOURS)
     Dates: start: 20180814
  21. EPINEPHRINE. [Suspect]
     Active Substance: EPINEPHRINE
     Indication: CHEST PAIN
     Dates: start: 20170309
  22. GABAPENTIN. [Concomitant]
     Active Substance: GABAPENTIN
     Indication: PRODUCT USED FOR UNKNOWN INDICATION
     Dosage: 900 MG DAILY
     Dates: start: 20180509
  23. METHYLPREDNISOLONE. [Suspect]
     Active Substance: METHYLPREDNISOLONE
     Indication: CHEST PAIN
     Dates: start: 20180306
  24. OXYCODONE [Concomitant]
     Active Substance: OXYCODONE
     Indication: PRODUCT USED FOR UNKNOWN INDICATION
     Dosage: 15 MG Q8H (77 PILLS)
     Dates: start: 20170602
  25. CELECOXIB. [Concomitant]
     Active Substance: CELECOXIB
     Indication: PRODUCT USED FOR UNKNOWN INDICATION
     Dosage: 200 MG DAILY
     Dates: start: 20171122
  26. OXYCODONE [Concomitant]
     Active Substance: OXYCODONE
     Indication: PRODUCT USED FOR UNKNOWN INDICATION
     Dosage: 15 MG Q6H (80 PILLS)
     Dates: start: 20180306
  27. OXYCODONE [Concomitant]
     Active Substance: OXYCODONE
     Indication: PRODUCT USED FOR UNKNOWN INDICATION
     Dosage: 15 MG TID (90 PILLS)
     Dates: start: 20180509
  28. PARACETAMOL [Concomitant]
     Active Substance: ACETAMINOPHEN
     Indication: PRODUCT USED FOR UNKNOWN INDICATION
     Dosage: 1000 MG Q6H (EVERY 6 HOURS)
     Dates: start: 20180604
  29. AMITRIPTYLINE [Concomitant]
     Active Substance: AMITRIPTYLINE
     Indication: PRODUCT USED FOR UNKNOWN INDICATION
     Dosage: 30 MG DAILY
     Dates: start: 20181120
  30. CELECOXIB. [Concomitant]
     Active Substance: CELECOXIB
     Indication: PRODUCT USED FOR UNKNOWN INDICATION
     Dosage: 200 MG DAILY
     Dates: start: 20181120
  31. DULOXETINE/DULOXETINE HYDROCHLORIDE [Concomitant]
     Indication: PRODUCT USED FOR UNKNOWN INDICATION
     Dosage: 30 MG DAILY
     Dates: start: 20181120
  32. CLONIDINE. [Concomitant]
     Active Substance: CLONIDINE
     Indication: PRODUCT USED FOR UNKNOWN INDICATION
     Dosage: 0.3 MG BID (TWICE DAILY)
     Dates: start: 20190312
  33. ROPIVACAINE/ROPIVACAINE HYDROCHLORIDE [Suspect]
     Active Substance: ROPIVACAINE HYDROCHLORIDE
     Indication: CHEST PAIN
     Dosage: 1 PERCENT, 180 MG
     Dates: start: 20170309
  34. LIDOCAINE. [Suspect]
     Active Substance: LIDOCAINE
     Indication: CHEST PAIN
     Dosage: 1 PERCENT, 20MG
     Dates: start: 20170309
  35. CELECOXIB. [Concomitant]
     Active Substance: CELECOXIB
     Indication: PRODUCT USED FOR UNKNOWN INDICATION
     Dosage: 200 MG BID (TWICE DAILY)
     Dates: start: 20170309
  36. CLONIDINE. [Concomitant]
     Active Substance: CLONIDINE
     Indication: PRODUCT USED FOR UNKNOWN INDICATION
     Dosage: 0.3 MICRO-GRAMS BID (TWICE DAILY)
     Dates: start: 20170309
  37. EXPAREL [Suspect]
     Active Substance: BUPIVACAINE
     Indication: CHEST PAIN
     Dosage: 266 MG, 20 ML
     Dates: start: 20181120
  38. AMITRIPTYLINE [Concomitant]
     Active Substance: AMITRIPTYLINE
     Indication: PRODUCT USED FOR UNKNOWN INDICATION
     Dosage: 30 MG DAILY
     Dates: start: 20180306
  39. AMITRIPTYLINE [Concomitant]
     Active Substance: AMITRIPTYLINE
     Indication: PRODUCT USED FOR UNKNOWN INDICATION
     Dosage: 30 MG DAILY
     Dates: start: 20180604
  40. GABAPENTIN. [Concomitant]
     Active Substance: GABAPENTIN
     Indication: PRODUCT USED FOR UNKNOWN INDICATION
     Dosage: 900 MG DAILY
     Dates: start: 20180814
  41. PARACETAMOL [Concomitant]
     Active Substance: ACETAMINOPHEN
     Indication: PRODUCT USED FOR UNKNOWN INDICATION
     Dosage: 1000 MG Q6H (EVERY 6 HOURS)
     Dates: start: 20190312
  42. ROPIVACAINE/ROPIVACAINE HYDROCHLORIDE [Suspect]
     Active Substance: ROPIVACAINE HYDROCHLORIDE
     Indication: CHEST PAIN
     Dosage: 1 PERCENT, 180 MG
     Dates: start: 20170309
  43. DULOXETINE/DULOXETINE HYDROCHLORIDE [Concomitant]
     Active Substance: DULOXETINE HYDROCHLORIDE
     Indication: PRODUCT USED FOR UNKNOWN INDICATION
     Dosage: 30 MG DAILY
     Dates: start: 20180509
  44. ROPIVACAINE/ROPIVACAINE HYDROCHLORIDE [Suspect]
     Active Substance: ROPIVACAINE HYDROCHLORIDE
     Indication: CHEST PAIN
     Dosage: 1 PERCENT, 200 MG
     Dates: start: 20180306
  45. LIDOCAINE. [Suspect]
     Active Substance: LIDOCAINE
     Indication: CHEST PAIN
     Dosage: 2 PERCENT, 100MG
     Dates: start: 20180509
  46. LIDOCAINE. [Suspect]
     Active Substance: LIDOCAINE
     Indication: CHEST PAIN
     Dosage: 1.5 PERCENT, 75 MG
     Dates: start: 20180604
  47. CLONIDINE. [Suspect]
     Active Substance: CLONIDINE
     Indication: CHEST PAIN
     Dates: start: 20170907
  48. CLONIDINE. [Suspect]
     Active Substance: CLONIDINE
     Indication: CHEST PAIN
     Dates: start: 20180509
  49. CLONIDINE. [Suspect]
     Active Substance: CLONIDINE
     Indication: CHEST PAIN
     Dates: start: 20180604
  50. ROPIVACAINE/ROPIVACAINE HYDROCHLORIDE [Suspect]
     Active Substance: ROPIVACAINE HYDROCHLORIDE
     Indication: CHEST PAIN
     Dosage: 1 PERCENT, 200 MG
     Dates: start: 20180604
  51. METHYLPREDNISOLONE. [Suspect]
     Active Substance: METHYLPREDNISOLONE
     Indication: CHEST PAIN
     Dates: start: 20170907
  52. DULOXETINE/DULOXETINE HYDROCHLORIDE [Concomitant]
     Indication: PRODUCT USED FOR UNKNOWN INDICATION
     Dosage: 30 MG DAILY
     Dates: start: 20180814
  53. EXPAREL [Suspect]
     Active Substance: BUPIVACAINE
     Indication: CHEST PAIN
     Dosage: 266 MG, 20 ML
     Dates: start: 20180123
  54. OXYCODONE [Concomitant]
     Active Substance: OXYCODONE
     Indication: PRODUCT USED FOR UNKNOWN INDICATION
     Dosage: 15 MG Q8H (EVERY 8 HOURS) (90 PILLS)
     Dates: start: 20170309
  55. ROPIVACAINE/ROPIVACAINE HYDROCHLORIDE [Suspect]
     Active Substance: ROPIVACAINE HYDROCHLORIDE
     Indication: CHEST PAIN
     Dosage: 0.5 PERCENT, 100 MG
     Dates: start: 20170602
  56. CLONIDINE. [Suspect]
     Active Substance: CLONIDINE
     Indication: CHEST PAIN
     Dates: start: 20180306
  57. EPINEPHRINE. [Suspect]
     Active Substance: EPINEPHRINE
     Indication: CHEST PAIN
     Dates: start: 20180604
  58. EXPAREL [Suspect]
     Active Substance: BUPIVACAINE
     Indication: CHEST PAIN
     Dosage: 266 MG, 20 ML
     Dates: start: 20180814
  59. OXYCODONE [Concomitant]
     Active Substance: OXYCODONE
     Indication: PRODUCT USED FOR UNKNOWN INDICATION
     Dosage: 15 MG Q6H (120 PILLS)
     Dates: start: 20170907
  60. CLONIDINE. [Concomitant]
     Active Substance: CLONIDINE
     Indication: PRODUCT USED FOR UNKNOWN INDICATION
     Dosage: 0.3 MICRO-GRAMS BID (TWICE DAILY)
     Dates: start: 20170907
  61. OXYCODONE [Concomitant]
     Active Substance: OXYCODONE
     Indication: PRODUCT USED FOR UNKNOWN INDICATION
     Dosage: 15 MG Q6H (100 PILLS)
     Dates: start: 20171122
  62. CLONIDINE. [Concomitant]
     Active Substance: CLONIDINE
     Indication: PRODUCT USED FOR UNKNOWN INDICATION
     Dosage: 0.3 MG, BID (TWICE DAILY)
     Dates: start: 20171122
  63. OXYCODONE [Concomitant]
     Active Substance: OXYCODONE
     Indication: PRODUCT USED FOR UNKNOWN INDICATION
     Dosage: 15 MG Q6H (90 PILLS)
     Dates: start: 20180123
  64. CLONIDINE. [Concomitant]
     Active Substance: CLONIDINE
     Indication: PRODUCT USED FOR UNKNOWN INDICATION
     Dosage: 0.3 MG, BID (TWICE DAILY)
     Dates: start: 20180123
  65. PARACETAMOL [Concomitant]
     Active Substance: ACETAMINOPHEN
     Indication: PRODUCT USED FOR UNKNOWN INDICATION
     Dosage: 1000 MG Q6H (EVERY 6 HOURS)
     Dates: start: 20180509
  66. PARACETAMOL [Concomitant]
     Active Substance: ACETAMINOPHEN
     Indication: PRODUCT USED FOR UNKNOWN INDICATION
     Dosage: 1000 MG Q6H (EVERY 6 HOURS)
     Dates: start: 20181120
  67. CLONIDINE. [Suspect]
     Active Substance: CLONIDINE
     Indication: CHEST PAIN
     Dates: start: 20171122
  68. ROPIVACAINE/ROPIVACAINE HYDROCHLORIDE [Suspect]
     Active Substance: ROPIVACAINE HYDROCHLORIDE
     Indication: CHEST PAIN
     Dosage: 1 PERCENT, 200 MG
     Dates: start: 20170907
  69. CELECOXIB. [Concomitant]
     Active Substance: CELECOXIB
     Indication: PRODUCT USED FOR UNKNOWN INDICATION
     Dosage: 200 MG DAILY
     Dates: start: 20170907
  70. AMITRIPTYLINE [Concomitant]
     Active Substance: AMITRIPTYLINE
     Indication: PRODUCT USED FOR UNKNOWN INDICATION
     Dosage: 30 MG DAILY
     Dates: start: 20180123
  71. CLONIDINE. [Concomitant]
     Active Substance: CLONIDINE
     Indication: PRODUCT USED FOR UNKNOWN INDICATION
     Dosage: 0.3 MG BID (TWICE DAILY)
     Dates: start: 20180306
  72. CLONIDINE. [Concomitant]
     Active Substance: CLONIDINE
     Indication: PRODUCT USED FOR UNKNOWN INDICATION
     Dosage: 0.3 MG, BID (TWICE DAILY)
     Dates: start: 20180509
  73. AMITRIPTYLINE [Concomitant]
     Active Substance: AMITRIPTYLINE
     Indication: PRODUCT USED FOR UNKNOWN INDICATION
     Dosage: 30 MG DAILY
     Dates: start: 20180814
  74. CLONIDINE. [Concomitant]
     Active Substance: CLONIDINE
     Indication: PRODUCT USED FOR UNKNOWN INDICATION
     Dosage: 0.3 MG BID (TWICE DAILY)
     Dates: start: 20180814

REACTIONS (5)
  - Pneumothorax [Unknown]
  - Muscle spasms [Unknown]
  - Hypoaesthesia [Unknown]
  - Drug ineffective [Unknown]
  - Injection site bruising [Unknown]
